FAERS Safety Report 14684762 (Version 1)
Quarter: 2018Q1

REPORT INFORMATION
  Report Type: Spontaneous
  Country: US (occurrence: US)
  Receive Date: 20180327
  Receipt Date: 20180327
  Transmission Date: 20180509
  Serious: No
  Sender: FDA-Public Use
  Company Number: US-CLOVIS ONCOLOGY-CLO-2018-000107

PATIENT
  Sex: Female

DRUGS (1)
  1. RUBRACA [Suspect]
     Active Substance: RUCAPARIB CAMSYLATE
     Indication: PRODUCT USED FOR UNKNOWN INDICATION
     Dosage: TWO PILLS IN THE MORNING, TWO PILLS AT NIGHT
     Dates: start: 201706

REACTIONS (7)
  - Rash [Unknown]
  - Anaemia [Unknown]
  - Photosensitivity reaction [Unknown]
  - Vomiting [Unknown]
  - Nausea [Unknown]
  - Platelet count decreased [Unknown]
  - Blood creatinine increased [Recovered/Resolved]
